FAERS Safety Report 21254778 (Version 1)
Quarter: 2022Q3

REPORT INFORMATION
  Report Type: Spontaneous
  Country: FR (occurrence: FR)
  Receive Date: 20220825
  Receipt Date: 20220825
  Transmission Date: 20221026
  Serious: Yes (Hospitalization, Other)
  Sender: FDA-Public Use
  Company Number: None

PATIENT
  Age: 86 Year
  Sex: Female
  Weight: 64 kg

DRUGS (1)
  1. ACYCLOVIR [Suspect]
     Active Substance: ACYCLOVIR
     Indication: Pneumonia herpes viral
     Dosage: 500 MILLIGRAM, (500 MG X 3/J)
     Route: 042
     Dates: start: 20220601, end: 20220614

REACTIONS (2)
  - Dermatitis bullous [Not Recovered/Not Resolved]
  - Infusion site vesicles [Not Recovered/Not Resolved]

NARRATIVE: CASE EVENT DATE: 20220611
